FAERS Safety Report 9233717 (Version 1)
Quarter: 2013Q2

REPORT INFORMATION
  Report Type: Spontaneous
  Country: US (occurrence: US)
  Receive Date: 20130416
  Receipt Date: 20130416
  Transmission Date: 20140414
  Serious: No
  Sender: FDA-Public Use
  Company Number: US-BANPHARM-20130952

PATIENT
  Age: 67 Year
  Sex: Female

DRUGS (4)
  1. ALEVE LIQUID GELS 220MG [Suspect]
     Indication: ARTHRITIS
     Dosage: 1 DF, ONCE,
     Route: 048
     Dates: start: 20120423, end: 20120423
  2. LIPITOR [Concomitant]
  3. LOW DOSE ASPIRIN [Concomitant]
  4. LISINOPRIL [Concomitant]

REACTIONS (3)
  - Headache [Recovered/Resolved]
  - Ear discomfort [Recovered/Resolved]
  - Abdominal discomfort [Recovered/Resolved]
